FAERS Safety Report 10768430 (Version 4)
Quarter: 2015Q2

REPORT INFORMATION
  Report Type: Spontaneous
  Country: JP (occurrence: JP)
  Receive Date: 20150206
  Receipt Date: 20150603
  Transmission Date: 20150821
  Serious: Yes (Death, Hospitalization)
  Sender: FDA-Public Use
  Company Number: JP-BRISTOL-MYERS SQUIBB COMPANY-BMS-2015-005817

PATIENT
  Age: 78 Year
  Sex: Male
  Weight: 35 kg

DRUGS (7)
  1. PANTOSIN [Concomitant]
     Active Substance: PANTETHINE
     Indication: CONSTIPATION
     Dosage: 100 MG, TID
     Route: 065
  2. RESTAMIN                           /00000401/ [Concomitant]
     Indication: PROPHYLAXIS
     Dosage: 50 MG, QWK
     Route: 048
     Dates: start: 20141211, end: 20150114
  3. LOXOPROFEN [Concomitant]
     Active Substance: LOXOPROFEN
     Indication: ANALGESIC THERAPY
     Dosage: 60 MG, UNK
     Route: 048
     Dates: start: 20141217
  4. ERBITUX [Suspect]
     Active Substance: CETUXIMAB
     Indication: OROPHARYNGEAL CANCER
     Dosage: 250 MG, QWK
     Route: 041
     Dates: start: 20141203, end: 20150119
  5. DECADRON [Concomitant]
     Active Substance: DEXAMETHASONE
     Indication: PROPHYLAXIS
     Dosage: 8 MG, QWK
     Route: 042
     Dates: start: 20141203, end: 20150114
  6. MAGMITT [Concomitant]
     Active Substance: MAGNESIUM OXIDE
     Indication: CONSTIPATION
     Dosage: 330 MG, TID
     Route: 048
  7. REBAMIPIDE [Concomitant]
     Active Substance: REBAMIPIDE
     Indication: GASTRIC DISORDER
     Dosage: 100 MG, UNK
     Route: 048
     Dates: start: 20141217

REACTIONS (3)
  - Sepsis [Fatal]
  - Encephalitis [Unknown]
  - Lymphocyte count decreased [Fatal]

NARRATIVE: CASE EVENT DATE: 20150119
